FAERS Safety Report 10573849 (Version 2)
Quarter: 2014Q4

REPORT INFORMATION
  Report Type: Report from Study
  Country: US (occurrence: US)
  Receive Date: 20141110
  Receipt Date: 20141120
  Transmission Date: 20150529
  Serious: Yes (Hospitalization)
  Sender: FDA-Public Use
  Company Number: US-ACTELION-A-US2014-107576

PATIENT
  Age: 76 Year
  Sex: Female

DRUGS (14)
  1. LOVAZA [Concomitant]
     Active Substance: OMEGA-3-ACID ETHYL ESTERS
  2. ADVAIR HFA [Concomitant]
     Active Substance: FLUTICASONE PROPIONATE\SALMETEROL XINAFOATE
  3. INDERAL [Concomitant]
     Active Substance: PROPRANOLOL HYDROCHLORIDE
     Indication: HYPERTENSION
     Dosage: 80 MG, BID
  4. METOPROLOL [Concomitant]
     Active Substance: METOPROLOL
     Indication: HYPERTENSION
  5. INSULIN [Concomitant]
     Active Substance: INSULIN NOS
  6. OXYGEN. [Concomitant]
     Active Substance: OXYGEN
  7. ASPIRIN. [Concomitant]
     Active Substance: ASPIRIN
     Dosage: 81 MG, QD
  8. ZITHROMAX [Concomitant]
     Active Substance: AZITHROMYCIN DIHYDRATE
     Dosage: 250 MG, QD
  9. LOSARTAN [Concomitant]
     Active Substance: LOSARTAN
     Dosage: 50 MG, BID
  10. METFORMIN [Concomitant]
     Active Substance: METFORMIN HYDROCHLORIDE
     Dosage: 500 MG, BID
  11. ATENOLOL. [Concomitant]
     Active Substance: ATENOLOL
     Indication: HYPERTENSION
  12. TRACLEER [Suspect]
     Active Substance: BOSENTAN\BOSENTAN MONOHYDRATE
     Indication: PULMONARY HYPERTENSION
     Dosage: UNK
     Route: 048
  13. ALBUTEROL. [Concomitant]
     Active Substance: ALBUTEROL
     Dosage: UNK, PRN
  14. TORSEMIDE. [Concomitant]
     Active Substance: TORSEMIDE
     Dosage: 20 MG, QD

REACTIONS (26)
  - Headache [Recovered/Resolved]
  - Upper limb fracture [Unknown]
  - Depressed mood [Unknown]
  - Hypertension [Unknown]
  - Pain [Unknown]
  - Electrocardiogram QT prolonged [Unknown]
  - Dysphagia [Unknown]
  - Hypertriglyceridaemia [Unknown]
  - Abnormal behaviour [Unknown]
  - Transient ischaemic attack [Recovered/Resolved]
  - Fatigue [Unknown]
  - Pain in extremity [Unknown]
  - Sinus arrhythmia [Unknown]
  - VIIth nerve paralysis [Recovered/Resolved]
  - Dizziness [Unknown]
  - Asthenia [Unknown]
  - Dyspnoea exertional [Unknown]
  - Arthritis [Unknown]
  - Hemiparesis [Recovered/Resolved]
  - Hyperlipidaemia [Unknown]
  - Fall [Unknown]
  - Heart rate decreased [Not Recovered/Not Resolved]
  - Memory impairment [Unknown]
  - Blood glucose abnormal [Unknown]
  - Choking sensation [Unknown]
  - Sinus bradycardia [Unknown]

NARRATIVE: CASE EVENT DATE: 2013
